FAERS Safety Report 23151424 (Version 4)
Quarter: 2023Q4

REPORT INFORMATION
  Report Type: Report from Study
  Country: US (occurrence: US)
  Receive Date: 20231107
  Receipt Date: 20231221
  Transmission Date: 20240110
  Serious: Yes (Hospitalization, Other)
  Sender: FDA-Public Use
  Company Number: US-ABBVIE-5417638

PATIENT
  Sex: Female

DRUGS (14)
  1. DUOPA [Suspect]
     Active Substance: CARBIDOPA\LEVODOPA
     Indication: Parkinson^s disease
     Dosage: LAST ADMIN DATE WAS JUN 2019.
     Route: 050
     Dates: start: 20190618
  2. DUOPA [Suspect]
     Active Substance: CARBIDOPA\LEVODOPA
     Dosage: LAST ADMIN DATE WAS 2019.
     Route: 050
     Dates: start: 20190524
  3. DUOPA [Suspect]
     Active Substance: CARBIDOPA\LEVODOPA
     Dosage: LAST ADMIN DATE WAS 2019.
     Route: 050
     Dates: start: 20190529
  4. AMANTADINE [Concomitant]
     Active Substance: AMANTADINE
     Indication: Product used for unknown indication
     Route: 048
  5. MELATONIN [Concomitant]
     Active Substance: MELATONIN
     Indication: Product used for unknown indication
     Route: 048
  6. TRAZODONE [Concomitant]
     Active Substance: TRAZODONE HYDROCHLORIDE
     Indication: Product used for unknown indication
     Route: 048
  7. OXYCODONE AND ACETAMINOPHEN [Concomitant]
     Active Substance: ACETAMINOPHEN\OXYCODONE HYDROCHLORIDE
     Indication: Product used for unknown indication
     Dosage: 5-325MG  ?ONE TABLET.
     Route: 048
  8. CALCIUM [Concomitant]
     Active Substance: CALCIUM
     Indication: Product used for unknown indication
     Route: 048
  9. TELMISARTAN AND HYDROCHLOROTHIAZIDE [Concomitant]
     Active Substance: HYDROCHLOROTHIAZIDE\TELMISARTAN
     Indication: Product used for unknown indication
     Dosage: 80-25MG  ?ONE TABLET.
     Route: 048
  10. VITAMIN C [Concomitant]
     Active Substance: ASCORBIC ACID
     Indication: Product used for unknown indication
     Route: 048
  11. VITAMIN D2 [Concomitant]
     Active Substance: ERGOCALCIFEROL
     Indication: Product used for unknown indication
     Route: 048
  12. LIDOCAINE [Concomitant]
     Active Substance: LIDOCAINE
     Indication: Product used for unknown indication
     Route: 048
  13. RYTARY [Concomitant]
     Active Substance: CARBIDOPA\LEVODOPA
     Indication: Product used for unknown indication
     Dosage: 48.75-195MG
     Route: 048
  14. VITAMIN D3 [Concomitant]
     Active Substance: CHOLECALCIFEROL
     Indication: Product used for unknown indication

REACTIONS (11)
  - Urinary tract infection [Unknown]
  - Pain [Unknown]
  - Constipation [Unknown]
  - COVID-19 [Unknown]
  - Vein disorder [Unknown]
  - Stoma site infection [Unknown]
  - Intestinal obstruction [Unknown]
  - Bruxism [Unknown]
  - Rehabilitation therapy [Unknown]
  - Muscle tightness [Unknown]
  - Tooth fracture [Unknown]
